FAERS Safety Report 16988734 (Version 1)
Quarter: 2019Q4

REPORT INFORMATION
  Report Type: Spontaneous
  Country: US (occurrence: US)
  Receive Date: 20191101
  Receipt Date: 20191101
  Transmission Date: 20200122
  Serious: Yes (Other)
  Sender: FDA-Public Use
  Company Number: None

PATIENT
  Age: 48 Year
  Sex: Female
  Weight: 89.1 kg

DRUGS (7)
  1. CYMBALTA [Suspect]
     Active Substance: DULOXETINE HYDROCHLORIDE
     Indication: FIBROMYALGIA
     Dosage: ?          QUANTITY:1 CAPSULE(S);?
     Route: 048
     Dates: start: 20170401, end: 20191024
  2. ZYTEC [Concomitant]
  3. SYNTHROID [Concomitant]
     Active Substance: LEVOTHYROXINE SODIUM
  4. GLUCOSAMINE [Concomitant]
     Active Substance: GLUCOSAMINE
  5. AMBIEN [Concomitant]
     Active Substance: ZOLPIDEM TARTRATE
  6. TUMERIC [Concomitant]
     Active Substance: HERBALS\TURMERIC
  7. INDERAL LA [Concomitant]
     Active Substance: PROPRANOLOL HYDROCHLORIDE

REACTIONS (9)
  - Product use complaint [None]
  - Vertigo [None]
  - Withdrawal syndrome [None]
  - Nausea [None]
  - Hyperhidrosis [None]
  - Product complaint [None]
  - Paraesthesia [None]
  - Migraine [None]
  - Fatigue [None]

NARRATIVE: CASE EVENT DATE: 20191026
